FAERS Safety Report 14822659 (Version 4)
Quarter: 2018Q4

REPORT INFORMATION
  Report Type: Spontaneous
  Country: US (occurrence: US)
  Receive Date: 20180427
  Receipt Date: 20181210
  Transmission Date: 20190204
  Serious: Yes (Death, Hospitalization)
  Sender: FDA-Public Use
  Company Number: PHEH2018US016306

PATIENT
  Age: 57 Year
  Sex: Male

DRUGS (2)
  1. LENVIMA [Suspect]
     Active Substance: LENVATINIB
     Indication: RENAL CANCER
     Dosage: 18 MG, QD
     Route: 048
     Dates: start: 20180215
  2. AFINITOR [Suspect]
     Active Substance: EVEROLIMUS
     Indication: RENAL CANCER
     Dosage: 5 MG, QD
     Route: 048
     Dates: start: 20180101

REACTIONS (19)
  - Cough [Unknown]
  - Lymphocyte count decreased [Unknown]
  - Death [Fatal]
  - Red cell distribution width increased [Unknown]
  - Malaise [Unknown]
  - Weight decreased [Unknown]
  - White blood cell count increased [Unknown]
  - Fatigue [Unknown]
  - General physical condition abnormal [Unknown]
  - Polyp [Unknown]
  - Heart rate increased [Unknown]
  - Atypical pneumonia [Unknown]
  - Blood pressure increased [Unknown]
  - Pneumonia [Recovered/Resolved]
  - Blood calcium increased [Unknown]
  - Blood alkaline phosphatase increased [Unknown]
  - Blood count abnormal [Unknown]
  - Neutrophil count increased [Unknown]
  - Decreased appetite [Unknown]

NARRATIVE: CASE EVENT DATE: 20180627
